FAERS Safety Report 4913436-7 (Version None)
Quarter: 2006Q1

REPORT INFORMATION
  Report Type: 
  Country: None (occurrence: None)
  Receive Date: 20060113
  Receipt Date: 20050211
  Transmission Date: 20060701
  Serious: Yes (Other)
  Sender: FDA-Public Use
  Company Number: HQWYE340815FEB05

PATIENT
  Age: 57 Year
  Sex: Female

DRUGS (2)
  1. PREMPRO [Suspect]
     Indication: HORMONE REPLACEMENT THERAPY
     Dosage: ORAL
     Route: 048
     Dates: start: 19991119
  2. DEPO-PROVERA SUSPENSION/INJ [Suspect]
     Dosage: INTRAMUSCULAR
     Route: 030
     Dates: start: 19940101

REACTIONS (1)
  - BREAST CANCER [None]
